FAERS Safety Report 23935805 (Version 2)
Quarter: 2025Q2

REPORT INFORMATION
  Report Type: Report from Study
  Country: GB (occurrence: GB)
  Receive Date: 20240604
  Receipt Date: 20250506
  Transmission Date: 20250716
  Serious: Yes (Hospitalization, Other)
  Sender: UCB
  Company Number: GB-UCBSA-2024026097

PATIENT
  Age: 42 Year
  Sex: Female
  Weight: 74 kg

DRUGS (2)
  1. CERTOLIZUMAB PEGOL [Suspect]
     Active Substance: CERTOLIZUMAB PEGOL
     Indication: Psoriasis
     Dosage: 200 MILLIGRAM, EV 2 WEEKS(QOW)
     Dates: start: 20210714, end: 20231213
  2. ELOCON [ECONAZOLE NITRATE;TRIAMCINOLONE ACETONIDE] [Concomitant]
     Indication: Product used for unknown indication
     Dates: start: 20231213

REACTIONS (5)
  - Mastectomy [Recovered/Resolved with Sequelae]
  - Staphylococcal infection [Recovered/Resolved with Sequelae]
  - Biopsy breast [Recovered/Resolved with Sequelae]
  - Breast cancer [Not Recovered/Not Resolved]
  - Metastases to lymph nodes [Not Recovered/Not Resolved]

NARRATIVE: CASE EVENT DATE: 20231130
